FAERS Safety Report 5836317-3 (Version None)
Quarter: 2008Q3

REPORT INFORMATION
  Report Type: 
  Country: None (occurrence: None)
  Receive Date: 20080807
  Receipt Date: 20080730
  Transmission Date: 20090109
  Serious: Yes (Hospitalization)
  Sender: FDA-Public Use
  Company Number: US-JNJFOC-20080500319

PATIENT
  Sex: Female
  Weight: 88.91 kg

DRUGS (1)
  1. TYLENOL ALLERGY MULTI-SYMPTOM RAPID RELEASE [Suspect]
     Indication: HYPERSENSITIVITY
     Route: 048

REACTIONS (3)
  - HYPERTENSION [None]
  - SUPRAVENTRICULAR TACHYCARDIA [None]
  - VITH NERVE PARALYSIS [None]
